FAERS Safety Report 9003358 (Version 1)
Quarter: 2013Q1

REPORT INFORMATION
  Report Type: Spontaneous
  Country: US (occurrence: US)
  Receive Date: 20130108
  Receipt Date: 20130108
  Transmission Date: 20140127
  Serious: Yes (Hospitalization, Other)
  Sender: FDA-Public Use
  Company Number: CHPA2012US026014

PATIENT
  Age: 47 Year
  Sex: Female

DRUGS (1)
  1. EXCEDRIN MIGRAINE [Suspect]
     Indication: MIGRAINE
     Dosage: 6 CAPLETS PER DAY
     Route: 048
     Dates: start: 2010, end: 201201

REACTIONS (7)
  - Hypertension [Recovered/Resolved]
  - Migraine [Recovered/Resolved]
  - Nasopharyngitis [Recovered/Resolved]
  - Stress [Recovered/Resolved]
  - Amnesia [Unknown]
  - Overdose [Unknown]
  - Incorrect drug administration duration [Unknown]
